FAERS Safety Report 20070072 (Version 1)
Quarter: 2021Q4

REPORT INFORMATION
  Report Type: Spontaneous
  Country: US (occurrence: US)
  Receive Date: 20211115
  Receipt Date: 20211115
  Transmission Date: 20220303
  Serious: No
  Sender: FDA-Public Use
  Company Number: US-SA-2021SA083687

PATIENT
  Sex: Male

DRUGS (2)
  1. CERDELGA [Suspect]
     Active Substance: ELIGLUSTAT
     Indication: Gaucher^s disease
     Dosage: 84 MG, BID
     Route: 048
     Dates: start: 20200325, end: 202003
  2. CERDELGA [Suspect]
     Active Substance: ELIGLUSTAT
     Indication: Splenomegaly
     Dosage: 84 MG, Q12H
     Route: 048
     Dates: start: 20200326

REACTIONS (2)
  - Weight fluctuation [Unknown]
  - Product use in unapproved indication [Unknown]
